FAERS Safety Report 21374692 (Version 1)
Quarter: 2022Q3

REPORT INFORMATION
  Report Type: Spontaneous
  Country: US (occurrence: US)
  Receive Date: 20220926
  Receipt Date: 20220926
  Transmission Date: 20221027
  Serious: No
  Sender: FDA-Public Use
  Company Number: US-ALLERGAN-2136690US

PATIENT
  Sex: Female

DRUGS (7)
  1. LEXAPRO [Suspect]
     Active Substance: ESCITALOPRAM OXALATE
     Indication: Anxiety
     Dosage: UNK
  2. OCREVUS [Concomitant]
     Active Substance: OCRELIZUMAB
  3. VITAMIN D NOS [Concomitant]
     Active Substance: VITAMIN D NOS
  4. PROPRANOLOL HYDROCHLORIDE [Concomitant]
     Active Substance: PROPRANOLOL HYDROCHLORIDE
  5. CLARITHROMYCIN [Concomitant]
     Active Substance: CLARITHROMYCIN
  6. PREDNISONE [Concomitant]
     Active Substance: PREDNISONE
  7. BENADRYL [Concomitant]
     Active Substance: DIPHENHYDRAMINE HYDROCHLORIDE

REACTIONS (3)
  - Abdominal discomfort [Unknown]
  - Condition aggravated [Unknown]
  - Hallucination [Unknown]
